FAERS Safety Report 14739374 (Version 1)
Quarter: 2018Q2

REPORT INFORMATION
  Report Type: Spontaneous
  Country: CH (occurrence: CH)
  Receive Date: 20180410
  Receipt Date: 20180410
  Transmission Date: 20180711
  Serious: Yes (Hospitalization)
  Sender: FDA-Public Use
  Company Number: CH-ROCHE-2099771

PATIENT
  Age: 53 Year
  Sex: Female

DRUGS (2)
  1. PREDNISONE STREULI [Concomitant]
     Route: 048
     Dates: start: 20170515, end: 20170602
  2. MABTHERA [Suspect]
     Active Substance: RITUXIMAB
     Indication: PRODUCT USED FOR UNKNOWN INDICATION
     Route: 041
     Dates: start: 201706, end: 20171113

REACTIONS (3)
  - Uveitis [Not Recovered/Not Resolved]
  - Hypoacusis [Unknown]
  - Meningitis aseptic [Not Recovered/Not Resolved]

NARRATIVE: CASE EVENT DATE: 201801
